FAERS Safety Report 7414594-5 (Version None)
Quarter: 2011Q2

REPORT INFORMATION
  Report Type: 
  Country: None (occurrence: None)
  Receive Date: 20110406
  Receipt Date: 20110323
  Transmission Date: 20111010
  Serious: Yes (Other)
  Sender: FDA-Public Use
  Company Number: 20110217

PATIENT
  Age: 63 Year
  Sex: Male
  Weight: 95.2554 kg

DRUGS (3)
  1. GENERAL ANESTHESIA [Concomitant]
  2. DEXAMETHASONE SODIUM PHOSPHATE [Suspect]
     Indication: PROPHYLAXIS
     Dosage: 8 MG INTRAVENOUS
     Route: 042
     Dates: start: 20110309, end: 20110309
  3. DEXAMETHASONE SODIUM PHOSPHATE [Suspect]
     Indication: POST PROCEDURAL SWELLING
     Dosage: 8 MG INTRAVENOUS
     Route: 042
     Dates: start: 20110309, end: 20110309

REACTIONS (1)
  - PHLEBITIS [None]
